FAERS Safety Report 20245662 (Version 1)
Quarter: 2021Q4

REPORT INFORMATION
  Report Type: Spontaneous
  Country: US (occurrence: US)
  Receive Date: 20211229
  Receipt Date: 20211229
  Transmission Date: 20220303
  Serious: Yes (Hospitalization)
  Sender: FDA-Public Use
  Company Number: US-NOVARTISPH-NVSC2021US290013

PATIENT
  Age: 72 Year
  Sex: Female

DRUGS (1)
  1. LISINOPRIL [Suspect]
     Active Substance: LISINOPRIL
     Indication: Product used for unknown indication
     Dosage: UNK
     Route: 065
     Dates: start: 2011, end: 202101

REACTIONS (6)
  - Endocarditis [Unknown]
  - Device related infection [Unknown]
  - Loss of consciousness [Unknown]
  - Procedural haemorrhage [Unknown]
  - Mitral valve disease [Unknown]
  - Procedural complication [Unknown]

NARRATIVE: CASE EVENT DATE: 20210101
